FAERS Safety Report 7859978-6 (Version None)
Quarter: 2011Q4

REPORT INFORMATION
  Report Type: 
  Country: None (occurrence: None)
  Receive Date: 20111026
  Receipt Date: 20111026
  Transmission Date: 20120403
  Serious: Yes (Hospitalization)
  Sender: FDA-Public Use
  Company Number: None

PATIENT
  Age: 60 Year
  Sex: Male
  Weight: 55 kg

DRUGS (1)
  1. METOLAZONE [Suspect]
     Indication: OEDEMA
     Dosage: UNKNOWN DOSE PRIOR TO
     Dates: start: 20111018

REACTIONS (1)
  - PANCREATITIS ACUTE [None]
